FAERS Safety Report 10219084 (Version 1)
Quarter: 2014Q2

REPORT INFORMATION
  Report Type: Spontaneous
  Country: US (occurrence: None)
  Receive Date: 20140604
  Receipt Date: 20140604
  Transmission Date: 20141212
  Serious: Yes (Disabling)
  Sender: FDA-Public Use
  Company Number: None

PATIENT
  Age: 70 Year
  Sex: Female
  Weight: 88 kg

DRUGS (1)
  1. LEVOFLOXACIN [Suspect]
     Indication: NOSOCOMIAL INFECTION
     Dosage: INTO A VEIN
     Route: 042

REACTIONS (1)
  - Rotator cuff syndrome [None]
